FAERS Safety Report 7577141-3 (Version None)
Quarter: 2011Q2

REPORT INFORMATION
  Report Type: 
  Country: None (occurrence: None)
  Receive Date: 20110628
  Receipt Date: 20110606
  Transmission Date: 20111010
  Serious: Yes (Hospitalization, Other)
  Sender: FDA-Public Use
  Company Number: US-BAYER-201034072NA

PATIENT
  Sex: Female
  Weight: 77.098 kg

DRUGS (3)
  1. YAZ [Suspect]
     Indication: ACNE
     Dosage: UNK UNK, QD
     Route: 048
     Dates: start: 20080801, end: 20081101
  2. YAZ [Suspect]
     Indication: PREMENSTRUAL SYNDROME
  3. MOTRIN [Concomitant]
     Indication: PAIN
     Dosage: 400 MG, UNK

REACTIONS (4)
  - ABDOMINAL PAIN [None]
  - BILIARY CYST [None]
  - GALLBLADDER INJURY [None]
  - CHOLECYSTITIS ACUTE [None]
